FAERS Safety Report 6596806-3 (Version None)
Quarter: 2010Q1

REPORT INFORMATION
  Report Type: 
  Country: None (occurrence: None)
  Receive Date: 20100212
  Receipt Date: 20090804
  Transmission Date: 20100710
  Serious: No
  Sender: FDA-Public Use
  Company Number: 2009-00554

PATIENT
  Age: 78 Year
  Sex: Male
  Weight: 82.5547 kg

DRUGS (19)
  1. ZICAM COLD REMEDY NASAL GEL [Suspect]
     Dosage: QID, FEW DAYS; ABOUT 1 YR AGO-FEW DAYS
  2. ZICAM COLD REMEDY ORAL MIST [Suspect]
     Dosage: QID, FEW DAYS; ABOUT 1 YR AGO-FEW DAYS
  3. INDOCIN [Concomitant]
  4. ARICEPT [Concomitant]
  5. PLAVIX [Concomitant]
  6. ISOSORBIDE MONONITRATE [Concomitant]
  7. FLOMAX [Concomitant]
  8. DIAZEPAM [Concomitant]
  9. ATENOLOL [Concomitant]
  10. COLACE [Concomitant]
  11. AVODART [Concomitant]
  12. CARBIDOPA [Concomitant]
  13. LEVODOPA [Concomitant]
  14. ENALAPRIL MALEATE [Concomitant]
  15. MOVE FREE [Concomitant]
  16. Z-BEC [Concomitant]
  17. SKELAXIN [Concomitant]
  18. LEVOXYL [Concomitant]
  19. GEMFIBROZIL [Concomitant]

REACTIONS (2)
  - AGEUSIA [None]
  - ANOSMIA [None]
